FAERS Safety Report 5964407-3 (Version None)
Quarter: 2008Q4

REPORT INFORMATION
  Report Type: 
  Country: None (occurrence: None)
  Receive Date: 20081124
  Receipt Date: 20081114
  Transmission Date: 20090506
  Serious: Yes (Other)
  Sender: FDA-Public Use
  Company Number: IE-PFIZER INC-2008097278

PATIENT
  Sex: Male

DRUGS (3)
  1. ISTIN [Suspect]
     Route: 048
  2. LITHIUM CARBONATE [Interacting]
  3. DRUG, UNSPECIFIED [Interacting]

REACTIONS (2)
  - DRUG INTERACTION [None]
  - EUPHORIC MOOD [None]
